FAERS Safety Report 5737091-1 (Version None)
Quarter: 2008Q2

REPORT INFORMATION
  Report Type: 
  Country: None (occurrence: None)
  Receive Date: 20080512
  Receipt Date: 20080512
  Transmission Date: 20081010
  Serious: Yes (Hospitalization)
  Sender: FDA-Public Use
  Company Number: None

PATIENT
  Age: 65 Year
  Sex: Male
  Weight: 104.3 kg

DRUGS (4)
  1. LISINOPRIL [Suspect]
     Indication: HYPERTENSION
     Dosage: 10MG EVERY DAY PO
     Route: 048
     Dates: start: 20060202, end: 20080301
  2. LISINOPRIL [Suspect]
     Indication: RENAL DISORDER
     Dosage: 10MG EVERY DAY PO
     Route: 048
     Dates: start: 20060202, end: 20080301
  3. AMILORIDE HYDROCHLORIDE [Suspect]
     Indication: HYPERALDOSTERONISM
     Dosage: 5MG BID PO
     Route: 048
     Dates: start: 20010202, end: 20080301
  4. AMILORIDE HYDROCHLORIDE [Suspect]
     Indication: HYPERTENSION
     Dosage: 5MG BID PO
     Route: 048
     Dates: start: 20010202, end: 20080301

REACTIONS (1)
  - HYPERKALAEMIA [None]
